FAERS Safety Report 11610561 (Version 1)
Quarter: 2015Q4

REPORT INFORMATION
  Report Type: Other
  Country: JP (occurrence: JP)
  Receive Date: 20151008
  Receipt Date: 20151008
  Transmission Date: 20160304
  Serious: Yes (Other)
  Sender: FDA-Public Use
  Company Number: JP-LUPIN PHARMACEUTICALS INC.-2015-03078

PATIENT
  Age: 35 Year
  Sex: Female

DRUGS (1)
  1. FAMOTIDINE TABLET 20MG ^AMEL^ [Suspect]
     Active Substance: FAMOTIDINE
     Indication: PRODUCT USED FOR UNKNOWN INDICATION
     Route: 065
     Dates: start: 201307, end: 201307

REACTIONS (2)
  - Erythema multiforme [Unknown]
  - Drug-induced liver injury [Unknown]
